FAERS Safety Report 19258891 (Version 1)
Quarter: 2021Q2

REPORT INFORMATION
  Report Type: Spontaneous
  Country: US (occurrence: US)
  Receive Date: 20210514
  Receipt Date: 20210514
  Transmission Date: 20210717
  Serious: No
  Sender: FDA-Public Use
  Company Number: None

PATIENT
  Age: 72 Year
  Sex: Male
  Weight: 67.5 kg

DRUGS (4)
  1. VITAMIN D3 [Concomitant]
     Active Substance: CHOLECALCIFEROL
  2. IBUPROFEN. [Concomitant]
     Active Substance: IBUPROFEN
  3. BRILINTA [Suspect]
     Active Substance: TICAGRELOR
     Indication: ANTICOAGULANT THERAPY
     Route: 048
     Dates: start: 20201209, end: 20201230
  4. MULITIPLE VITAMINS [Concomitant]

REACTIONS (4)
  - Gait disturbance [None]
  - Arthralgia [None]
  - Insomnia [None]
  - Therapy cessation [None]

NARRATIVE: CASE EVENT DATE: 20201220
